FAERS Safety Report 12993495 (Version 3)
Quarter: 2017Q1

REPORT INFORMATION
  Report Type: Report from Study
  Country: CN (occurrence: CN)
  Receive Date: 20161202
  Receipt Date: 20170223
  Transmission Date: 20170428
  Serious: Yes (Death)
  Sender: FDA-Public Use
  Company Number: CN-ROCHE-1857282

PATIENT
  Age: 44 Year
  Sex: Male
  Weight: 54 kg

DRUGS (20)
  1. ATEZOLIZUMAB [Suspect]
     Active Substance: ATEZOLIZUMAB
     Indication: METASTATIC NEOPLASM
     Dosage: MOST RECENT DOSE 18/NOV/2016
     Route: 042
     Dates: start: 20161118
  2. OXYCODONE HYDROCHLORIDE. [Concomitant]
     Active Substance: OXYCODONE HYDROCHLORIDE
     Route: 065
     Dates: start: 20161116
  3. GLYCERINE [Concomitant]
     Active Substance: GLYCERIN
     Route: 054
     Dates: start: 20161116
  4. TRAMADOL. [Concomitant]
     Active Substance: TRAMADOL
     Route: 065
     Dates: start: 20161112, end: 20161115
  5. MACROGOL 4000 [Concomitant]
     Active Substance: POLYETHYLENE GLYCOL 4000
     Route: 065
     Dates: start: 20161112
  6. PANCREATIN [Concomitant]
     Active Substance: PANCRELIPASE
     Route: 065
     Dates: start: 20161112
  7. MOSAPRIDE CITRATE [Concomitant]
     Active Substance: MOSAPRIDE CITRATE
     Route: 065
     Dates: start: 20161116
  8. SODIUM CHLORIDE. [Concomitant]
     Active Substance: SODIUM CHLORIDE
     Route: 065
     Dates: start: 20161119
  9. ATEZOLIZUMAB [Suspect]
     Active Substance: ATEZOLIZUMAB
     Indication: OESOPHAGEAL CARCINOMA
  10. MOSAPRIDE [Suspect]
     Active Substance: MOSAPRIDE
     Indication: PRODUCT USED FOR UNKNOWN INDICATION
     Route: 065
     Dates: start: 20161116, end: 20161123
  11. POTASSIUM CHLORIDE. [Concomitant]
     Active Substance: POTASSIUM CHLORIDE
     Route: 065
     Dates: start: 20161116, end: 20161119
  12. SULFURIC ACID [Concomitant]
     Active Substance: SULFURIC ACID
     Route: 065
     Dates: start: 20161119
  13. BIFID TRIPLE VIABLE [Concomitant]
     Route: 065
     Dates: start: 20161112
  14. ENTERAL ALIMENTATION [Concomitant]
     Route: 065
     Dates: start: 20161112
  15. DIAZEPAM. [Concomitant]
     Active Substance: DIAZEPAM
     Route: 048
     Dates: start: 20161113
  16. OXYCODONE HYDROCHLORIDE. [Concomitant]
     Active Substance: OXYCODONE HYDROCHLORIDE
     Route: 065
     Dates: start: 20161115, end: 20161116
  17. SULFURIC ACID [Concomitant]
     Active Substance: SULFURIC ACID
     Dosage: WITH MORPHINE
     Route: 065
     Dates: start: 20161115, end: 20161115
  18. MORPHINE [Concomitant]
     Active Substance: MORPHINE
     Dosage: WITH SULFURIC ACID
     Route: 065
     Dates: start: 20161115, end: 20161115
  19. CELECOXIB. [Concomitant]
     Active Substance: CELECOXIB
     Route: 065
     Dates: start: 20161111, end: 20161112
  20. MORPHINE [Concomitant]
     Active Substance: MORPHINE
     Route: 065
     Dates: start: 20161119

REACTIONS (2)
  - Aspartate aminotransferase increased [Not Recovered/Not Resolved]
  - Hepatic function abnormal [Fatal]

NARRATIVE: CASE EVENT DATE: 20161119
